FAERS Safety Report 5748227-0 (Version None)
Quarter: 2008Q2

REPORT INFORMATION
  Report Type: 
  Country: None (occurrence: None)
  Receive Date: 20080523
  Receipt Date: 20080407
  Transmission Date: 20081010
  Serious: No
  Sender: FDA-Public Use
  Company Number: JP-PFIZER INC-2008001221

PATIENT
  Sex: Male

DRUGS (9)
  1. MIGLITOL TABLET [Suspect]
     Indication: DIABETES MELLITUS
     Dosage: DAILY DOSE:75MG
     Route: 048
     Dates: start: 20071016, end: 20071209
  2. AMARYL [Concomitant]
     Indication: TYPE 2 DIABETES MELLITUS
     Dosage: DAILY DOSE:2MG
     Route: 048
     Dates: start: 20070730
  3. ASPIRIN [Concomitant]
     Indication: ANGINA PECTORIS
     Dosage: DAILY DOSE:100MG
     Route: 048
  4. MARZULENE S [Concomitant]
     Indication: GASTRITIS
     Dosage: DAILY DOSE:1.5GRAM
     Route: 048
     Dates: start: 19980112
  5. PLETAL [Concomitant]
     Indication: ARTERIOSCLEROSIS OBLITERANS
     Dosage: DAILY DOSE:200MG
     Dates: start: 19980126
  6. ULCERLMIN [Concomitant]
     Indication: DUODENAL ULCER
     Dosage: DAILY DOSE:3GRAM
     Route: 048
     Dates: start: 19980126
  7. MAGNESIUM OXIDE [Concomitant]
     Indication: CONSTIPATION
     Dosage: DAILY DOSE:4.5GRAM
     Route: 048
     Dates: start: 19990705
  8. PANTOSIN [Concomitant]
     Indication: CONSTIPATION
     Dosage: DAILY DOSE:9GRAM
     Route: 048
     Dates: start: 19990705
  9. ATELEC [Concomitant]
     Indication: HYPERTENSION
     Dosage: DAILY DOSE:10MG
     Route: 048
     Dates: start: 20010226

REACTIONS (2)
  - ATONIC SEIZURES [None]
  - HYPOAESTHESIA [None]
